FAERS Safety Report 6229837-3 (Version None)
Quarter: 2009Q2

REPORT INFORMATION
  Report Type: 
  Country: None (occurrence: None)
  Receive Date: 20090615
  Receipt Date: 20090604
  Transmission Date: 20091009
  Serious: Yes (Hospitalization, Other)
  Sender: FDA-Public Use
  Company Number: US-PFIZER INC-2005122957

PATIENT
  Sex: Female
  Weight: 73 kg

DRUGS (6)
  1. PROVERA [Suspect]
     Indication: HORMONE REPLACEMENT THERAPY
     Dosage: 2.5 MG, 1X/DAY
     Route: 048
     Dates: start: 19890101, end: 19960101
  2. PROVERA [Suspect]
     Dosage: 2.5 MG, 1X/DAY
     Route: 048
     Dates: start: 20020806, end: 20020813
  3. ESTRACE [Suspect]
     Indication: HORMONE REPLACEMENT THERAPY
     Dosage: 2 MG, 1X/DAY
     Dates: start: 19890101, end: 19960101
  4. ESTRACE [Suspect]
     Dosage: 2 MG, 1X/DAY
     Dates: start: 20020806, end: 20020813
  5. PREMPRO [Suspect]
     Indication: HORMONE REPLACEMENT THERAPY
     Dosage: UNK
     Dates: start: 19961001, end: 20020801
  6. CELEBREX [Concomitant]
     Indication: ARTHRITIS
     Dosage: UNK
     Dates: start: 20010101, end: 20040101

REACTIONS (1)
  - BREAST CANCER [None]
